FAERS Safety Report 10535284 (Version 3)
Quarter: 2014Q4

REPORT INFORMATION
  Report Type: Spontaneous
  Country: JP (occurrence: JP)
  Receive Date: 20141022
  Receipt Date: 20141221
  Transmission Date: 20150529
  Serious: Yes (Disabling, Other)
  Sender: FDA-Public Use
  Company Number: JP-GLAXOSMITHKLINE-JP2014JPN009116

PATIENT
  Age: 50 Year
  Sex: Female

DRUGS (7)
  1. REVOLADE [Suspect]
     Active Substance: ELTROMBOPAG
     Dosage: 12.5 MG, QD
     Route: 048
     Dates: start: 20120828, end: 20120909
  2. REVOLADE [Suspect]
     Active Substance: ELTROMBOPAG
     Dosage: 25 MG, UNK
     Route: 048
     Dates: start: 20120910, end: 20121111
  3. PREDNISOLONE. [Concomitant]
     Active Substance: PREDNISOLONE
     Dosage: 30 MG, UNK
     Dates: start: 201202
  4. REVOLADE [Suspect]
     Active Substance: ELTROMBOPAG
     Dosage: 37.5 MG, UNK
     Route: 048
     Dates: start: 20121112, end: 20121126
  5. GASTER [Concomitant]
     Active Substance: FAMOTIDINE
     Dosage: UNK
  6. BONALON [Concomitant]
     Active Substance: ALENDRONATE SODIUM
     Dosage: UNK, WE
  7. PREDONINE [Concomitant]
     Active Substance: PREDNISOLONE\PREDNISOLONE ACETATE\PREDNISOLONE SODIUM SUCCINATE
     Dosage: UNK

REACTIONS (2)
  - Myelofibrosis [Not Recovered/Not Resolved]
  - Erythroblast count increased [Unknown]

NARRATIVE: CASE EVENT DATE: 20121217
